FAERS Safety Report 4873190-4 (Version None)
Quarter: 2006Q1

REPORT INFORMATION
  Report Type: 
  Country: None (occurrence: None)
  Receive Date: 20060105
  Receipt Date: 20060102
  Transmission Date: 20060701
  Serious: Yes (Other)
  Sender: FDA-Public Use
  Company Number: 200514219EU

PATIENT
  Sex: Male

DRUGS (2)
  1. NICORETTE [Suspect]
     Indication: SMOKING CESSATION THERAPY
     Dosage: 1GUM FIFTEEN TIMES PER DAY
     Route: 002
     Dates: start: 20020101
  2. ASTHMA MEDICATION [Concomitant]
     Indication: ASTHMA
     Route: 055

REACTIONS (5)
  - AGGRESSION [None]
  - DEPENDENCE [None]
  - DRUG WITHDRAWAL SYNDROME [None]
  - INSOMNIA [None]
  - MOOD ALTERED [None]
